FAERS Safety Report 10689732 (Version 1)
Quarter: 2015Q1

REPORT INFORMATION
  Report Type: Spontaneous
  Country: US (occurrence: None)
  Receive Date: 20150102
  Receipt Date: 20150102
  Transmission Date: 20150720
  Serious: Yes (Life-Threatening, Hospitalization, Other)
  Sender: FDA-Public Use
  Company Number: None

PATIENT
  Age: 50 Year
  Sex: Male
  Weight: 56.93 kg

DRUGS (1)
  1. WARFARIN [Suspect]
     Active Substance: WARFARIN
     Indication: ATRIAL FIBRILLATION
     Route: 048
     Dates: start: 20141023, end: 20141026

REACTIONS (5)
  - Haemorrhage intracranial [None]
  - Haemorrhage [None]
  - Transient ischaemic attack [None]
  - Unresponsive to stimuli [None]
  - Ischaemic stroke [None]

NARRATIVE: CASE EVENT DATE: 20141026
